FAERS Safety Report 8195590-X (Version None)
Quarter: 2012Q1

REPORT INFORMATION
  Report Type: 
  Country: None (occurrence: None)
  Receive Date: 20120308
  Receipt Date: 20120229
  Transmission Date: 20120608
  Serious: No
  Sender: FDA-Public Use
  Company Number: US-BAYER-2012-021393

PATIENT

DRUGS (2)
  1. AVONEX [Concomitant]
     Dosage: INJECTION
  2. ALEVE (CAPLET) [Suspect]

REACTIONS (4)
  - HEADACHE [None]
  - PALPITATIONS [None]
  - FEELING ABNORMAL [None]
  - PYREXIA [None]
